FAERS Safety Report 6458669-6 (Version None)
Quarter: 2009Q4

REPORT INFORMATION
  Report Type: 
  Country: None (occurrence: None)
  Receive Date: 20091120
  Receipt Date: 20091111
  Transmission Date: 20100525
  Serious: Yes (Hospitalization)
  Sender: FDA-Public Use
  Company Number: A20090601-003

PATIENT
  Age: 71 Year
  Sex: Female

DRUGS (6)
  1. PITAVASTATIN CALCIUM [Suspect]
     Indication: HYPERCHOLESTEROLAEMIA
     Dosage: 2MG PO
     Route: 048
     Dates: start: 20081216, end: 20090526
  2. BISOPROLOL FUMARATE [Concomitant]
  3. AMLDOIPINE BESILATE [Concomitant]
  4. CLOPIDOGREL SULFATE [Concomitant]
  5. ASPIRIN [Concomitant]
  6. NICORANDIL [Concomitant]

REACTIONS (6)
  - ALANINE AMINOTRANSFERASE INCREASED [None]
  - ASPARTATE AMINOTRANSFERASE INCREASED [None]
  - DRUG INTERACTION [None]
  - FATIGUE [None]
  - HEPATIC FUNCTION ABNORMAL [None]
  - RHABDOMYOLYSIS [None]
